FAERS Safety Report 17233245 (Version 1)
Quarter: 2020Q1

REPORT INFORMATION
  Report Type: Spontaneous
  Country: FR (occurrence: FR)
  Receive Date: 20200104
  Receipt Date: 20200104
  Transmission Date: 20200409
  Serious: Yes (Hospitalization)
  Sender: FDA-Public Use
  Company Number: FR-TEVA-2019-FR-1160848

PATIENT
  Age: 55 Year
  Sex: Male
  Weight: 97 kg

DRUGS (9)
  1. PIPERACILLINE BASE [Suspect]
     Active Substance: PIPERACILLIN SODIUM
     Indication: ANTIBIOTIC THERAPY
     Dosage: SEE COMMENT
     Route: 042
     Dates: start: 20191018, end: 20191105
  2. PARACETAMOL [Concomitant]
     Active Substance: ACETAMINOPHEN
     Route: 048
  3. ACTISKENAN 20 MG, GELULE [Concomitant]
     Active Substance: MORPHINE SULFATE
     Route: 048
  4. SETOFILM 4 MG, FILM ORODISPERSIBLE [Concomitant]
     Route: 048
  5. MOVICOL [Concomitant]
     Active Substance: POLYETHYLENE GLYCOL 3350\POTASSIUM CHLORIDE\SODIUM BICARBONATE\SODIUM CHLORIDE
     Route: 048
  6. VANCOMYCINE [Suspect]
     Active Substance: VANCOMYCIN
     Indication: ANTIBIOTIC THERAPY
     Dosage: 1.5 G 2X / D UNTIL 21 THEN 2 G X2 / D
     Route: 042
     Dates: start: 20191018, end: 20191024
  7. TAZOBACTAM [Suspect]
     Active Substance: TAZOBACTAM
     Indication: ANTIBIOTIC THERAPY
     Dosage: SEE COMMENT
     Route: 042
     Dates: start: 20191018, end: 20191105
  8. LOVENOX [Concomitant]
     Active Substance: ENOXAPARIN SODIUM
     Dosage: 1 DOSAGE FORM PER DAY
     Route: 058
  9. SKENAN [Concomitant]
     Active Substance: MORPHINE SULFATE
     Dosage: 2 DOSAGE FORMS PER DAY
     Route: 048

REACTIONS (1)
  - Acute kidney injury [Recovering/Resolving]

NARRATIVE: CASE EVENT DATE: 20191024
